FAERS Safety Report 16181126 (Version 2)
Quarter: 2019Q2

REPORT INFORMATION
  Report Type: Spontaneous
  Country: US (occurrence: US)
  Receive Date: 20190410
  Receipt Date: 20190413
  Transmission Date: 20190711
  Serious: Yes (Life-Threatening, Hospitalization, Other)
  Sender: FDA-Public Use
  Company Number: PHHY2019US077375

PATIENT
  Age: 28 Year
  Sex: Male

DRUGS (1)
  1. MYCOPHENOLIC ACID. [Suspect]
     Active Substance: MYCOPHENOLIC ACID
     Indication: CHRONIC KIDNEY DISEASE
     Dosage: UNK
     Route: 065

REACTIONS (9)
  - Product use in unapproved indication [Unknown]
  - Headache [Recovered/Resolved]
  - Spinal cord oedema [Recovering/Resolving]
  - Posterior reversible encephalopathy syndrome [Recovering/Resolving]
  - Retinal oedema [Unknown]
  - Fall [Recovered/Resolved]
  - Thoracic vertebral fracture [Unknown]
  - Generalised tonic-clonic seizure [Unknown]
  - Confusional state [Recovered/Resolved]
